FAERS Safety Report 7826662-4 (Version None)
Quarter: 2011Q4

REPORT INFORMATION
  Report Type: 
  Country: None (occurrence: None)
  Receive Date: 20111020
  Receipt Date: 20110929
  Transmission Date: 20120403
  Serious: No
  Sender: FDA-Public Use
  Company Number: US-MYLANLABS-2011S1020575

PATIENT
  Age: 64 Year
  Sex: Female

DRUGS (4)
  1. BUPROPION HYDROCHLORIDE [Suspect]
     Route: 048
     Dates: start: 20110901
  2. METOPROLOL TARTRATE [Concomitant]
     Indication: BLOOD PRESSURE
     Route: 048
     Dates: start: 20060101
  3. CLONAZEPAM [Suspect]
     Indication: ANXIETY
     Route: 048
  4. METOPROLOL TARTRATE [Concomitant]
     Route: 048
     Dates: start: 20060101

REACTIONS (1)
  - OCULAR ICTERUS [None]
